FAERS Safety Report 8490724-1 (Version None)
Quarter: 2012Q3

REPORT INFORMATION
  Report Type: 
  Country: None (occurrence: None)
  Receive Date: 20120706
  Receipt Date: 20120625
  Transmission Date: 20120928
  Serious: Yes (Hospitalization, Other)
  Sender: FDA-Public Use
  Company Number: FR-AMGEN-FRASP2012030321

PATIENT
  Age: 69 Year
  Sex: Female

DRUGS (19)
  1. METHOTREXATE SODIUM [Suspect]
     Dosage: 15 MG, WEEKLY
     Route: 048
  2. TOCILIZUMAB [Suspect]
     Indication: RHEUMATOID ARTHRITIS
     Dosage: 1 DF, MONTHLY
     Route: 042
     Dates: start: 20100803, end: 20101126
  3. PREDNISONE TAB [Concomitant]
     Dosage: UNK
  4. VITAMIN D [Concomitant]
     Dosage: UNK
  5. SMECTA                             /00837601/ [Concomitant]
  6. OROCAL                             /00751519/ [Concomitant]
     Dosage: 500 MG
  7. ENBREL [Suspect]
     Indication: RHEUMATOID ARTHRITIS
     Dosage: UNK
     Route: 058
     Dates: start: 20080101, end: 20080101
  8. ACETAMINOPHEN [Concomitant]
     Dosage: UNK
  9. INDAPAMIDE [Concomitant]
  10. IMODIUM [Concomitant]
     Dosage: UNK
  11. ARIXTRA [Concomitant]
     Dosage: UNK
  12. FERROUS SULFATE TAB [Concomitant]
     Dosage: UNK
  13. SMECTA                             /00837601/ [Concomitant]
     Dosage: UNK
  14. FELDENE [Concomitant]
     Dosage: 20 MG, UNK
  15. MABTHERA [Suspect]
     Indication: RHEUMATOID ARTHRITIS
     Dosage: UNK
     Route: 042
     Dates: start: 20090127, end: 20100119
  16. FOLIC ACID [Concomitant]
     Dosage: 5 MG
  17. PROTELOS [Concomitant]
     Dosage: 2 G
  18. OMEPRAZOLE [Concomitant]
     Dosage: UNK
  19. PROTELOS [Concomitant]
     Dosage: 2 G, UNK

REACTIONS (15)
  - WEIGHT DECREASED [None]
  - IMMUNOSUPPRESSION [None]
  - CYTOMEGALOVIRUS COLITIS [None]
  - PERITONITIS [None]
  - NECK PAIN [None]
  - BASAL CELL CARCINOMA [None]
  - INTESTINAL PERFORATION [None]
  - ANAEMIA [None]
  - HEPATOCELLULAR INJURY [None]
  - ARTHRALGIA [None]
  - ABSCESS [None]
  - LYMPHOPENIA [None]
  - PULMONARY EMBOLISM [None]
  - LYMPHADENOPATHY [None]
  - EPSTEIN-BARR VIRUS ASSOCIATED LYMPHOMA [None]
